FAERS Safety Report 6843825-5 (Version None)
Quarter: 2010Q3

REPORT INFORMATION
  Report Type: 
  Country: None (occurrence: None)
  Receive Date: 20100715
  Receipt Date: 20100701
  Transmission Date: 20110219
  Serious: Yes (Other)
  Sender: FDA-Public Use
  Company Number: PHHY2010FR37239

PATIENT
  Sex: Male
  Weight: 65 kg

DRUGS (1)
  1. RASILEZ [Suspect]
     Indication: HYPERTENSION
     Dosage: 150 MG, QD
     Route: 048
     Dates: start: 20091122, end: 20091129

REACTIONS (3)
  - CHEST PAIN [None]
  - DYSPHAGIA [None]
  - OESOPHAGITIS [None]
